FAERS Safety Report 9358273 (Version 1)
Quarter: 2013Q2

REPORT INFORMATION
  Report Type: Spontaneous
  Country: US (occurrence: US)
  Receive Date: 20130620
  Receipt Date: 20130620
  Transmission Date: 20140414
  Serious: No
  Sender: FDA-Public Use
  Company Number: US-US-EMD SERONO, INC.-7213640

PATIENT
  Age: 31 Year
  Sex: Female
  Weight: 88 kg

DRUGS (1)
  1. REBIF [Suspect]
     Indication: RELAPSING-REMITTING MULTIPLE SCLEROSIS
     Route: 058
     Dates: start: 20080501

REACTIONS (4)
  - Muscle strain [Unknown]
  - Weight decreased [Not Recovered/Not Resolved]
  - Injection site urticaria [Not Recovered/Not Resolved]
  - Injection site erythema [Not Recovered/Not Resolved]
